FAERS Safety Report 6644806-7 (Version None)
Quarter: 2010Q1

REPORT INFORMATION
  Report Type: 
  Country: None (occurrence: None)
  Receive Date: 20100322
  Receipt Date: 20100310
  Transmission Date: 20100710
  Serious: Yes (Other)
  Sender: FDA-Public Use
  Company Number: JP-PFIZER INC-2010034908

PATIENT
  Sex: Female

DRUGS (3)
  1. SOLANAX [Suspect]
     Indication: DEPRESSION
     Dosage: UNK
     Route: 048
  2. DEPAS [Concomitant]
     Route: 048
  3. TECIPUL [Concomitant]
     Dosage: UNK
     Route: 048

REACTIONS (3)
  - ALTERED STATE OF CONSCIOUSNESS [None]
  - DIZZINESS [None]
  - SOMNOLENCE [None]
